FAERS Safety Report 8919944 (Version 1)
Quarter: 2012Q4

REPORT INFORMATION
  Report Type: 
  Country: US (occurrence: US)
  Receive Date: 20121121
  Receipt Date: 20121121
  Transmission Date: 20130627
  Serious: No
  Sender: FDA-Public Use
  Company Number: US-BAYER-2012-118996

PATIENT
  Sex: Female

DRUGS (2)
  1. MIRENA [Suspect]
     Indication: CONTRACEPTION
     Dosage: 20 ?g/d, CONT
     Route: 015
     Dates: start: 201012, end: 20120913
  2. MIRENA [Suspect]
     Indication: CONTRACEPTION
     Dosage: 20 ?g/d, CONT
     Route: 015
     Dates: start: 200812, end: 2009

REACTIONS (7)
  - Muscle spasms [None]
  - Irritability [None]
  - Abdominal distension [None]
  - Breast tenderness [None]
  - Vaginal discharge [None]
  - Libido decreased [None]
  - Dyspareunia [None]
